FAERS Safety Report 5652449-7 (Version None)
Quarter: 2008Q1

REPORT INFORMATION
  Report Type: 
  Country: None (occurrence: None)
  Receive Date: 20080305
  Receipt Date: 20080305
  Transmission Date: 20080703
  Serious: Yes (Other)
  Sender: FDA-Public Use
  Company Number: None

PATIENT
  Age: 49 Year
  Sex: Female
  Weight: 63.5036 kg

DRUGS (1)
  1. CHANTIX [Suspect]
     Indication: SMOKING CESSATION THERAPY
     Dosage: 1 1MG 2 TIMES PO
     Route: 048
     Dates: start: 20080202, end: 20080304

REACTIONS (3)
  - ANXIETY [None]
  - CRYING [None]
  - DEPRESSION [None]
